FAERS Safety Report 13513927 (Version 1)
Quarter: 2017Q2

REPORT INFORMATION
  Report Type: Spontaneous
  Country: NL (occurrence: NL)
  Receive Date: 20170504
  Receipt Date: 20170504
  Transmission Date: 20170830
  Serious: Yes (Other)
  Sender: FDA-Public Use
  Company Number: NL-TEVA-765382ACC

PATIENT
  Age: 23 Year
  Sex: Female
  Weight: 65 kg

DRUGS (2)
  1. NON SPECIFIED O.A.C. [Concomitant]
     Route: 048
  2. AMOXICILLIN CAPSULE 500MG [Suspect]
     Active Substance: AMOXICILLIN
     Indication: SINUSITIS
     Dosage: 1500 MILLIGRAM DAILY;
     Route: 048
     Dates: start: 20170310, end: 20170317

REACTIONS (4)
  - Urticaria [Recovered/Resolved]
  - Chest discomfort [None]
  - Rash [Recovered/Resolved]
  - Dyspnoea [Recovered/Resolved]

NARRATIVE: CASE EVENT DATE: 20170315
